FAERS Safety Report 4583026-7 (Version None)
Quarter: 2005Q1

REPORT INFORMATION
  Report Type: 
  Country: None (occurrence: None)
  Receive Date: 20050125
  Receipt Date: 20040927
  Transmission Date: 20050727
  Serious: No
  Sender: FDA-Public Use
  Company Number: USA040979443

PATIENT
  Age: 78 Year
  Sex: Female

DRUGS (6)
  1. FORTEO [Suspect]
     Dates: start: 20040816
  2. NEURONTIN (GABAPENTIN PFIZER) [Concomitant]
  3. BEXTRA [Concomitant]
  4. CALCIUM GLUCONATE [Concomitant]
  5. ULTRACET [Concomitant]
  6. ULTRAM [Concomitant]

REACTIONS (4)
  - ARTHRALGIA [None]
  - ASTHENIA [None]
  - NEUROPATHY PERIPHERAL [None]
  - PAIN IN EXTREMITY [None]
